FAERS Safety Report 5275184-6 (Version None)
Quarter: 2007Q1

REPORT INFORMATION
  Report Type: 
  Country: None (occurrence: None)
  Receive Date: 20070320
  Receipt Date: 20070307
  Transmission Date: 20070707
  Serious: Yes (Hospitalization)
  Sender: FDA-Public Use
  Company Number: 2007-155107-NL

PATIENT
  Age: 28 Year
  Sex: Female

DRUGS (10)
  1. FOLLITROPIN BETA [Suspect]
     Indication: OVULATION INDUCTION
     Dosage: 150 IU/200 IU SUBCUTANEOUS
     Route: 058
     Dates: start: 20070112, end: 20070112
  2. FOLLITROPIN BETA [Suspect]
     Indication: OVULATION INDUCTION
     Dosage: 150 IU/200 IU SUBCUTANEOUS
     Route: 058
     Dates: start: 20070112, end: 20070118
  3. CHORIONIC GONADOTROPIN [Suspect]
     Indication: OVULATION INDUCTION
     Dosage: 10000 IU ONCE SUBCUTANEOUS
     Route: 058
     Dates: start: 20070119, end: 20070119
  4. GANIRELIX ACETATE INJECTION [Concomitant]
  5. PROGESTERONE [Concomitant]
  6. ATROPINE SULFATE [Concomitant]
  7. MIDAZOLAM HCL [Concomitant]
  8. PROPOFOL [Concomitant]
  9. SUFENTANIL CITRATE [Concomitant]
  10. PARACETAMOL [Concomitant]

REACTIONS (5)
  - DRUG EXPOSURE DURING PREGNANCY [None]
  - OVARIAN HYPERSTIMULATION SYNDROME [None]
  - OVARIAN TORSION [None]
  - PELVIC FLUID COLLECTION [None]
  - TWIN PREGNANCY [None]
